FAERS Safety Report 6412699-9 (Version None)
Quarter: 2009Q4

REPORT INFORMATION
  Report Type: 
  Country: None (occurrence: None)
  Receive Date: 20091023
  Receipt Date: 20091019
  Transmission Date: 20100525
  Serious: Yes (Death, Other)
  Sender: FDA-Public Use
  Company Number: PHHY2009GB05604

PATIENT
  Sex: Female
  Weight: 70 kg

DRUGS (6)
  1. CLOZARIL [Suspect]
     Indication: SCHIZOAFFECTIVE DISORDER
     Dosage: UNK
     Route: 048
     Dates: start: 20090101
  2. METFORMIN HCL [Concomitant]
     Indication: TYPE 2 DIABETES MELLITUS
     Dosage: 1700 MG DAILY
     Route: 048
  3. GLICLAZIDE [Concomitant]
     Indication: TYPE 2 DIABETES MELLITUS
     Dosage: 320 MG
     Route: 048
  4. LITHIUM [Concomitant]
     Indication: MOOD SWINGS
     Dosage: 800 MG
     Route: 048
  5. OLANZAPINE [Concomitant]
     Indication: PSYCHOTIC DISORDER
     Dosage: 10 MG
     Route: 048
  6. ANTIBIOTICS [Concomitant]
     Route: 042

REACTIONS (9)
  - AGGRESSION [None]
  - ANXIETY [None]
  - COUGH [None]
  - DIABETES MELLITUS [None]
  - GENERAL PHYSICAL HEALTH DETERIORATION [None]
  - HAEMOGLOBIN DECREASED [None]
  - MALAISE [None]
  - PNEUMONIA [None]
  - RASH [None]
